FAERS Safety Report 15863333 (Version 1)
Quarter: 2019Q1

REPORT INFORMATION
  Report Type: Spontaneous
  Country: US (occurrence: US)
  Receive Date: 20190124
  Receipt Date: 20190124
  Transmission Date: 20190417
  Serious: No
  Sender: FDA-Public Use
  Company Number: None

PATIENT
  Age: 41 Year
  Sex: Female
  Weight: 114.75 kg

DRUGS (1)
  1. MULTIHANCE [Suspect]
     Active Substance: GADOBENATE DIMEGLUMINE
     Indication: TINNITUS
     Dosage: ?          OTHER FREQUENCY:AS NEEDED FOR EXAM;?
     Route: 040
     Dates: start: 20190123, end: 20190123

REACTIONS (1)
  - Urticaria [None]

NARRATIVE: CASE EVENT DATE: 20190123
